FAERS Safety Report 10356451 (Version 2)
Quarter: 2014Q4

REPORT INFORMATION
  Report Type: Spontaneous
  Country: IT (occurrence: IT)
  Receive Date: 20140801
  Receipt Date: 20141113
  Transmission Date: 20150528
  Serious: Yes (Life-Threatening, Other)
  Sender: FDA-Public Use
  Company Number: IT-ACCORD-025102

PATIENT
  Age: 68 Year
  Sex: Female
  Weight: 140 kg

DRUGS (2)
  1. AVASTIN [Suspect]
     Active Substance: BEVACIZUMAB
     Indication: BREAST CANCER METASTATIC
     Dosage: AVASTIN -(ROCHE REGISTRATION LIMITED)??1 DF CYCLICAL EVERY 15 DAYS
     Route: 042
     Dates: start: 20140516
  2. PACLITAXEL/PACLITAXEL LIPOSOME [Suspect]
     Active Substance: PACLITAXEL
     Indication: BREAST CANCER METASTATIC
     Dosage: 1 COMBINED DOSAGE
     Route: 042
     Dates: start: 20140516, end: 20140613

REACTIONS (6)
  - Hepatic failure [Unknown]
  - Loss of consciousness [Recovering/Resolving]
  - Fall [Unknown]
  - Acute kidney injury [Unknown]
  - Cyanosis [Recovering/Resolving]
  - Humerus fracture [Unknown]

NARRATIVE: CASE EVENT DATE: 20140613
